FAERS Safety Report 5860265-6 (Version None)
Quarter: 2008Q3

REPORT INFORMATION
  Report Type: 
  Country: None (occurrence: None)
  Receive Date: 20080827
  Receipt Date: 20080122
  Transmission Date: 20090109
  Serious: No
  Sender: FDA-Public Use
  Company Number: US-ABBOTT-07P-163-0378053-00

PATIENT
  Sex: Male

DRUGS (8)
  1. NIASPAN [Suspect]
     Indication: BLOOD CHOLESTEROL INCREASED
     Route: 048
     Dates: start: 20070718
  2. TESTOSTERONE [Suspect]
     Indication: ILL-DEFINED DISORDER
     Route: 048
  3. WARFARIN SODIUM [Suspect]
     Indication: ANTICOAGULANT THERAPY
     Route: 048
     Dates: end: 20070701
  4. LOSARTAN POTASSIUM [Concomitant]
     Indication: DRUG USE FOR UNKNOWN INDICATION
  5. TYLOX [Concomitant]
     Indication: DRUG USE FOR UNKNOWN INDICATION
  6. CALCIUM [Concomitant]
     Indication: DRUG USE FOR UNKNOWN INDICATION
  7. VITAMIN E [Concomitant]
     Indication: DRUG USE FOR UNKNOWN INDICATION
  8. ERGOCALCIFEROL [Concomitant]
     Indication: DRUG USE FOR UNKNOWN INDICATION

REACTIONS (3)
  - DRUG INTERACTION [None]
  - HAIR GROWTH ABNORMAL [None]
  - PROTHROMBIN TIME PROLONGED [None]
